FAERS Safety Report 20172807 (Version 1)
Quarter: 2021Q4

REPORT INFORMATION
  Report Type: Spontaneous
  Country: FR (occurrence: FR)
  Receive Date: 20211211
  Receipt Date: 20211211
  Transmission Date: 20220304
  Serious: Yes (Hospitalization)
  Sender: FDA-Public Use
  Company Number: None

PATIENT
  Age: 82 Year
  Sex: Female
  Weight: 88 kg

DRUGS (10)
  1. CIPROFLOXACIN [Suspect]
     Active Substance: CIPROFLOXACIN
     Indication: Infection
     Dosage: 1 DF
     Route: 048
     Dates: start: 20211026, end: 20211102
  2. NORMACOL [Suspect]
     Active Substance: HERBALS\KARAYA GUM
     Indication: Constipation
     Dosage: 1 DF
     Route: 054
     Dates: start: 20211026, end: 20211104
  3. IOMERON [Suspect]
     Active Substance: IOMEPROL
     Indication: Computerised tomogram
     Dosage: 1 DF, IOMERON 350 (350 MG IODINE / ML), SOLUTION FOR INJECTION
     Route: 042
     Dates: start: 20211103
  4. AZACTAM [Suspect]
     Active Substance: AZTREONAM
     Indication: Infection
     Dosage: 3 GRAM, AZACTAM 1 G, POWDER AND SOLUTION FOR PARENTERAL USE
     Route: 042
     Dates: start: 20211023, end: 20211026
  5. MINERAL OIL [Concomitant]
     Active Substance: MINERAL OIL
  6. ACETAMINOPHEN [Concomitant]
     Active Substance: ACETAMINOPHEN
  7. TROSPIUM CHLORIDE [Concomitant]
     Active Substance: TROSPIUM CHLORIDE
  8. PANTOPRAZOLE [Concomitant]
     Active Substance: PANTOPRAZOLE
  9. POTASSIUM BITARTRATE\SODIUM BICARBONATE [Concomitant]
     Active Substance: POTASSIUM BITARTRATE\SODIUM BICARBONATE
  10. ALPRAZOLAM [Concomitant]
     Active Substance: ALPRAZOLAM

REACTIONS (1)
  - Rash maculo-papular [Recovering/Resolving]

NARRATIVE: CASE EVENT DATE: 20211103
